FAERS Safety Report 4546341-9 (Version None)
Quarter: 2005Q1

REPORT INFORMATION
  Report Type: 
  Country: None (occurrence: None)
  Receive Date: 20050103
  Receipt Date: 20041220
  Transmission Date: 20050727
  Serious: Yes (Death, Hospitalization, Other)
  Sender: FDA-Public Use
  Company Number: 2004116594

PATIENT
  Age: 51 Year
  Sex: Female
  Weight: 125.1928 kg

DRUGS (9)
  1. GEODON [Suspect]
     Indication: ILL-DEFINED DISORDER
  2. HALOPERIDOL [Suspect]
     Indication: ILL-DEFINED DISORDER
  3. VALPROATE SODIUM [Suspect]
     Indication: ILL-DEFINED DISORDER
  4. CLOZAPINE [Suspect]
     Indication: SCHIZOAFFECTIVE DISORDER
     Dosage: 300 MG, ORAL
     Route: 048
     Dates: start: 20040908, end: 20040926
  5. GLIMEPIRIDE [Concomitant]
  6. AZITHROMYCIN [Concomitant]
  7. HYDROCHLOROTHIAZIDE [Concomitant]
  8. LISINOPRIL [Concomitant]
  9. METFORMIN HCL [Concomitant]

REACTIONS (10)
  - BRONCHITIS ACUTE [None]
  - COMA [None]
  - DIABETES MELLITUS INADEQUATE CONTROL [None]
  - HEADACHE [None]
  - MANIA [None]
  - PSYCHOTIC DISORDER [None]
  - RESPIRATORY FAILURE [None]
  - RESUSCITATION [None]
  - THERAPEUTIC RESPONSE DECREASED [None]
  - WHEEZING [None]
